FAERS Safety Report 9651521 (Version 4)
Quarter: 2014Q1

REPORT INFORMATION
  Report Type: Report from Study
  Country: CA (occurrence: CA)
  Receive Date: 20131029
  Receipt Date: 20140211
  Transmission Date: 20141002
  Serious: Yes (Hospitalization, Other)
  Sender: FDA-Public Use
  Company Number: CA-JNJFOC-20130406151

PATIENT
  Age: 27 Year
  Sex: Female
  Weight: 84 kg

DRUGS (9)
  1. REMICADE [Suspect]
     Indication: CROHN^S DISEASE
     Dosage: 400 MG ONCE EVERY 0, 2 AND 6 (UNITS UNSPECIFIED)
     Route: 042
     Dates: start: 20131009
  2. REMICADE [Suspect]
     Indication: CROHN^S DISEASE
     Dosage: 400 MG ONCE EVERY 0, 2 AND 6 (UNITS UNSPECIFIED)
     Route: 042
     Dates: start: 20131021
  3. REMICADE [Suspect]
     Indication: CROHN^S DISEASE
     Route: 042
     Dates: start: 20120123, end: 20130408
  4. REMICADE [Suspect]
     Indication: CROHN^S DISEASE
     Route: 042
     Dates: start: 201112
  5. BENADRYL [Suspect]
     Indication: PREMEDICATION
     Route: 042
     Dates: start: 20131021
  6. BENADRYL [Suspect]
     Indication: PREMEDICATION
     Route: 042
     Dates: start: 20130408
  7. TYLENOL [Suspect]
     Indication: PREMEDICATION
     Route: 048
     Dates: start: 20130408
  8. TYLENOL [Suspect]
     Indication: PREMEDICATION
     Route: 048
     Dates: start: 20131021
  9. SOLUCORTEF [Concomitant]
     Indication: PREMEDICATION
     Route: 042
     Dates: start: 20131021

REACTIONS (8)
  - Caesarean section [Unknown]
  - Dyspnoea [Recovered/Resolved]
  - Chest discomfort [Recovered/Resolved]
  - Infusion related reaction [Recovered/Resolved]
  - Exposure during pregnancy [Recovered/Resolved]
  - Muscle spasms [Recovered/Resolved]
  - Headache [Recovering/Resolving]
  - Erythema [Recovered/Resolved]
